FAERS Safety Report 6296368-4 (Version None)
Quarter: 2009Q3

REPORT INFORMATION
  Report Type: 
  Country: None (occurrence: None)
  Receive Date: 20090804
  Receipt Date: 20090803
  Transmission Date: 20100115
  Serious: Yes (Death)
  Sender: FDA-Public Use
  Company Number: PHBS2007JP17402

PATIENT
  Age: 27 Year
  Sex: Female

DRUGS (5)
  1. CYCLOSPORINE [Suspect]
     Indication: AUTOIMMUNE HEPATITIS
     Dosage: 100 MG/DAY
     Route: 065
  2. AZATHIOPRINE [Concomitant]
     Indication: AUTOIMMUNE HEPATITIS
     Dosage: 50 MG/DAY
     Route: 065
  3. AZATHIOPRINE [Concomitant]
     Dosage: 25 MG/DAY
     Route: 065
  4. PREDONINE [Concomitant]
     Indication: AUTOIMMUNE HEPATITIS
     Dosage: 30 MG/DAY
     Route: 065
  5. PREDONINE [Concomitant]
     Dosage: 40 MG/DAY
     Route: 065

REACTIONS (8)
  - AUTOIMMUNE HEPATITIS [None]
  - BLOOD BILIRUBIN INCREASED [None]
  - DEPRESSED LEVEL OF CONSCIOUSNESS [None]
  - DRUG RESISTANCE [None]
  - HYPOXIA [None]
  - PNEUMOCYSTIS JIROVECI PNEUMONIA [None]
  - RESPIRATORY FAILURE [None]
  - TRANSAMINASES INCREASED [None]
